FAERS Safety Report 26010401 (Version 2)
Quarter: 2025Q4

REPORT INFORMATION
  Report Type: Spontaneous
  Country: JP (occurrence: JP)
  Receive Date: 20251107
  Receipt Date: 20251202
  Transmission Date: 20260117
  Serious: Yes (Other)
  Sender: COSETTE PHARMACEUTICALS INC
  Company Number: JP-DSJP-DS-2025-172398-JP

PATIENT
  Age: 7 Decade
  Sex: Male

DRUGS (2)
  1. EFFIENT [Suspect]
     Active Substance: PRASUGREL HYDROCHLORIDE
     Indication: Myocardial infarction
     Route: 048
  2. EDOXABAN TOSYLATE [Suspect]
     Active Substance: EDOXABAN TOSYLATE
     Indication: Myocardial infarction
     Route: 048

REACTIONS (2)
  - Shock haemorrhagic [Unknown]
  - Post procedural haematuria [Recovering/Resolving]

NARRATIVE: CASE EVENT DATE: 20231101
